FAERS Safety Report 4360940-9 (Version None)
Quarter: 2004Q2

REPORT INFORMATION
  Report Type: 
  Country: None (occurrence: None)
  Receive Date: 20040517
  Receipt Date: 20040418
  Transmission Date: 20050107
  Serious: Yes (Death, Hospitalization)
  Sender: FDA-Public Use
  Company Number: F01200401003

PATIENT
  Age: 48 Year
  Sex: Female

DRUGS (4)
  1. OXALIPLATIN SOLUTION 100 MG /M2 [Suspect]
     Indication: HEPATIC NEOPLASM MALIGNANT
     Dosage: NI
     Route: 042
  2. (CAPECITABINE) - UNKNOWN - UNIT DOSE: UNKNOWN [Suspect]
     Dosage: 500 MG
     Route: 048
  3. LIPIODOL - (IODIZED OIL) - FORM: UNKNOWN - UNIT DOSE: [Suspect]
  4. MENINGIOMA [Concomitant]

REACTIONS (5)
  - COAGULOPATHY [None]
  - MENINGORRHAGIA [None]
  - METABOLIC ACIDOSIS [None]
  - PERITONEAL DIALYSIS [None]
  - RENAL FAILURE [None]
